FAERS Safety Report 17809411 (Version 1)
Quarter: 2020Q2

REPORT INFORMATION
  Report Type: Spontaneous
  Country: FR (occurrence: FR)
  Receive Date: 20200521
  Receipt Date: 20200521
  Transmission Date: 20200714
  Serious: Yes (Hospitalization)
  Sender: FDA-Public Use
  Company Number: FR-SUN PHARMACEUTICAL INDUSTRIES LTD-2020RR-247888

PATIENT
  Age: 43 Year
  Sex: Male

DRUGS (9)
  1. BENERVA 500 MG/5 ML, SOLUTION INJECTABLE (IM) EN AMPOULE [Concomitant]
     Indication: PRODUCT USED FOR UNKNOWN INDICATION
     Dosage: UNK
     Route: 042
  2. LYSANXIA 10 MG, COMPRIME [Concomitant]
     Active Substance: PRAZEPAM
     Indication: PRODUCT USED FOR UNKNOWN INDICATION
     Dosage: 10 MILLIGRAM, DAILY
     Route: 048
  3. CERNEVIT [Concomitant]
     Active Substance: VITAMINS
     Indication: PRODUCT USED FOR UNKNOWN INDICATION
     Dosage: UNK
     Route: 042
  4. PYRIDOXINE CHLORHYDRATE RENAUDIN [Concomitant]
     Indication: PRODUCT USED FOR UNKNOWN INDICATION
     Dosage: UNK
     Route: 042
  5. RISPERIDONE. [Suspect]
     Active Substance: RISPERIDONE
     Indication: PSYCHOTIC DISORDER
     Dosage: 1 MILLIGRAM, DAILY
     Route: 048
     Dates: start: 20200318, end: 20200326
  6. SULPIRIDE [Suspect]
     Active Substance: SULPIRIDE
     Indication: PSYCHOTIC DISORDER
     Dosage: 300 MG LE MATIN ET 500 MG LE SOIR (2)
     Route: 048
  7. PARACETAMOL B BRAUN [Concomitant]
     Active Substance: ACETAMINOPHEN
     Indication: PRODUCT USED FOR UNKNOWN INDICATION
     Dosage: UNK
     Route: 042
  8. VITAMINE PP AGUETTANT 100 MG/2 ML, SOLUTION INJECTABLE [Concomitant]
     Indication: PRODUCT USED FOR UNKNOWN INDICATION
     Dosage: UNK
     Route: 042
  9. AMOXICILLINE ACIDE CLAVULANIQUE SANDOZ [Concomitant]
     Active Substance: AMOXICILLIN\CLAVULANATE POTASSIUM
     Indication: LUNG DISORDER
     Dosage: 6 GRAM, DAILY
     Route: 042

REACTIONS (4)
  - Intestinal obstruction [Recovering/Resolving]
  - Extrapyramidal disorder [Recovering/Resolving]
  - Pyrexia [Recovered/Resolved]
  - Blood creatine phosphokinase increased [Recovered/Resolved]

NARRATIVE: CASE EVENT DATE: 20200310
